FAERS Safety Report 4307864-0 (Version None)
Quarter: 2004Q1

REPORT INFORMATION
  Report Type: 
  Country: None (occurrence: None)
  Receive Date: 20040225
  Receipt Date: 20030417
  Transmission Date: 20041129
  Serious: Yes (Hospitalization)
  Sender: FDA-Public Use
  Company Number: WAES 0304USA01794

PATIENT
  Age: 65 Year
  Sex: Female

DRUGS (3)
  1. ZOCOR [Suspect]
     Dosage: 40MG/DAILY PO
     Route: 048
     Dates: start: 20030401
  2. EFFEXOR [Concomitant]
  3. BEXTRA [Suspect]

REACTIONS (2)
  - RENAL FAILURE [None]
  - RHABDOMYOLYSIS [None]
